FAERS Safety Report 9937284 (Version 1)
Quarter: 2014Q1

REPORT INFORMATION
  Report Type: Spontaneous
  Country: US (occurrence: US)
  Receive Date: 20140302
  Receipt Date: 20140302
  Transmission Date: 20141002
  Serious: No
  Sender: FDA-Public Use
  Company Number: US-TEVA-464151USA

PATIENT
  Sex: Male
  Weight: 74.91 kg

DRUGS (1)
  1. QNASL [Suspect]
     Indication: NASAL CONGESTION
     Dosage: 1 SPRAY IN EACH NOSTRIL TWICE A DAY

REACTIONS (1)
  - Sneezing [Unknown]
